FAERS Safety Report 15451838 (Version 1)
Quarter: 2018Q4

REPORT INFORMATION
  Report Type: Spontaneous
  Country: JP (occurrence: JP)
  Receive Date: 20181001
  Receipt Date: 20181001
  Transmission Date: 20190204
  Serious: Yes (Hospitalization)
  Sender: FDA-Public Use
  Company Number: JP-RECORDATI RARE DISEASES INC.-JP-R13005-18-00243

PATIENT
  Age: 4 Decade
  Sex: Female

DRUGS (1)
  1. COSMEGEN [Suspect]
     Active Substance: DACTINOMYCIN
     Indication: BENIGN HYDATIDIFORM MOLE
     Route: 065
     Dates: start: 201808

REACTIONS (1)
  - Pneumonia [Unknown]
